FAERS Safety Report 8358920-1 (Version None)
Quarter: 2012Q2

REPORT INFORMATION
  Report Type: 
  Country: None (occurrence: None)
  Receive Date: 20120515
  Receipt Date: 20120507
  Transmission Date: 20120825
  Serious: No
  Sender: FDA-Public Use
  Company Number: US-BIOGENIDEC-2012BI014534

PATIENT
  Sex: Female

DRUGS (3)
  1. ZYRTEC [Concomitant]
     Indication: PREMEDICATION
  2. AVONEX [Concomitant]
     Indication: MULTIPLE SCLEROSIS
     Route: 030
     Dates: start: 20060908
  3. TYSABRI [Suspect]
     Indication: MULTIPLE SCLEROSIS
     Route: 042
     Dates: start: 20110810

REACTIONS (5)
  - BRONCHITIS [None]
  - FEELING COLD [None]
  - CHILLS [None]
  - HYPERSENSITIVITY [None]
  - TREMOR [None]
